FAERS Safety Report 5610292-9 (Version None)
Quarter: 2008Q1

REPORT INFORMATION
  Report Type: 
  Country: None (occurrence: None)
  Receive Date: 20080128
  Receipt Date: 20080121
  Transmission Date: 20080703
  Serious: No
  Sender: FDA-Public Use
  Company Number: 163-21880-08011238

PATIENT
  Age: 77 Year
  Sex: Male

DRUGS (2)
  1. REVLIMID [Suspect]
     Indication: MULTIPLE MYELOMA
     Dosage: 15 MG, 1 IN 1 D, ORAL : 25 MG, 1 IN 1 D, ORAL
     Route: 048
     Dates: start: 20070521, end: 20070601
  2. REVLIMID [Suspect]
     Indication: MULTIPLE MYELOMA
     Dosage: 15 MG, 1 IN 1 D, ORAL : 25 MG, 1 IN 1 D, ORAL
     Route: 048
     Dates: start: 20070717

REACTIONS (2)
  - ARTHROPATHY [None]
  - CATARACT [None]
